FAERS Safety Report 22128315 (Version 1)
Quarter: 2023Q1

REPORT INFORMATION
  Report Type: Report from Study
  Country: CA (occurrence: CA)
  Receive Date: 20230323
  Receipt Date: 20230323
  Transmission Date: 20230418
  Serious: Yes (Other)
  Sender: FDA-Public Use
  Company Number: CA-ABBVIE-4697825

PATIENT
  Sex: Female

DRUGS (1)
  1. SKYRIZI [Suspect]
     Active Substance: RISANKIZUMAB-RZAA
     Indication: Crohn^s disease
     Dosage: FREQUENCY: WEEK 8, FIRST ADMIN DATE 20 JAN 2023
     Route: 042

REACTIONS (1)
  - Mouth ulceration [Unknown]

NARRATIVE: CASE EVENT DATE: 20230101
